FAERS Safety Report 18593021 (Version 5)
Quarter: 2021Q2

REPORT INFORMATION
  Report Type: Other
  Country: GB (occurrence: GB)
  Receive Date: 20201209
  Receipt Date: 20210624
  Transmission Date: 20210717
  Serious: Yes (Life-Threatening, Hospitalization, Other)
  Sender: FDA-Public Use
  Company Number: GB-ADVANZ PHARMA-202012010626

PATIENT

DRUGS (8)
  1. VORICONAZOLE. [Concomitant]
     Active Substance: VORICONAZOLE
     Indication: FUNGAL SKIN INFECTION
  2. PREDNISOLONE. [Suspect]
     Active Substance: PREDNISOLONE
     Indication: IMMUNOSUPPRESSANT DRUG THERAPY
     Dosage: UNK, UNKNOWN FREQ.
     Route: 065
  3. PROGRAF [Suspect]
     Active Substance: TACROLIMUS
     Indication: IMMUNOSUPPRESSANT DRUG THERAPY
     Dosage: 1 MG, TWICE DAILY (VARIABLE DOSING)
     Route: 048
     Dates: start: 20171108
  4. LIPOSOMAL AMPHOTERICIN B [Concomitant]
     Active Substance: AMPHOTERICIN B
     Indication: DISSEMINATED TRICHOSPORONOSIS
     Dosage: UNK
     Route: 042
  5. AMPHOTERICIN [Concomitant]
     Active Substance: AMPHOTERICIN B
     Indication: DISSEMINATED TRICHOSPORONOSIS
     Dosage: UNK
  6. FLUCYTOSINE. [Concomitant]
     Active Substance: FLUCYTOSINE
     Indication: DISSEMINATED TRICHOSPORONOSIS
     Route: 042
  7. MYCOPHENOLATE MOFETIL. [Suspect]
     Active Substance: MYCOPHENOLATE MOFETIL
     Indication: IMMUNOSUPPRESSANT DRUG THERAPY
     Dosage: UNK, UNKNOWN FREQ.
     Route: 065
  8. VORICONAZOLE. [Concomitant]
     Active Substance: VORICONAZOLE
     Indication: DISSEMINATED TRICHOSPORONOSIS
     Dosage: UNK
     Route: 042

REACTIONS (7)
  - Aortic aneurysm [Unknown]
  - Skin ulcer [Recovering/Resolving]
  - Endophthalmitis [Unknown]
  - Fungal skin infection [Recovered/Resolved]
  - Disseminated trichosporonosis [Recovered/Resolved]
  - Metastases to meninges [Unknown]
  - Skin plaque [Unknown]

NARRATIVE: CASE EVENT DATE: 201903
